FAERS Safety Report 8401924-0 (Version None)
Quarter: 2012Q2

REPORT INFORMATION
  Report Type: 
  Country: None (occurrence: None)
  Receive Date: 20120601
  Receipt Date: 20120531
  Transmission Date: 20120825
  Serious: Yes (Other)
  Sender: FDA-Public Use
  Company Number: AU-PFIZER INC-2012091784

PATIENT
  Age: 45 Year
  Sex: Female

DRUGS (1)
  1. XALATAN [Suspect]
     Indication: GLAUCOMA
     Dosage: 1 GTT, UNK, BOTH EYES

REACTIONS (3)
  - OCULAR HYPERAEMIA [None]
  - EYE PAIN [None]
  - CATARACT [None]
